FAERS Safety Report 4325921-X (Version None)
Quarter: 2004Q1

REPORT INFORMATION
  Report Type: 
  Country: None (occurrence: None)
  Receive Date: 20040324
  Receipt Date: 20040308
  Transmission Date: 20041129
  Serious: Yes (Disabling)
  Sender: FDA-Public Use
  Company Number: ATO-04-0218

PATIENT
  Age: 69 Year
  Sex: Female
  Weight: 107.5025 kg

DRUGS (7)
  1. TRISENOX [Suspect]
     Indication: MULTIPLE MYELOMA
     Dosage: 27 MG (27 MG, 2X/WK, IVI
     Route: 042
     Dates: start: 20040126, end: 20040213
  2. MELPHALAN [Suspect]
     Indication: MULTIPLE MYELOMA
     Dosage: (0.1 MG/KG, X4 DAYS)
     Dates: start: 20040126, end: 20040129
  3. ATIVAN [Concomitant]
  4. SEREVENT [Concomitant]
  5. AREDIA [Concomitant]
  6. LISINOPRIL [Concomitant]
  7. IRON [Concomitant]

REACTIONS (3)
  - HERPES ZOSTER [None]
  - SUPERINFECTION [None]
  - TREMOR [None]
